FAERS Safety Report 7135105-8 (Version None)
Quarter: 2010Q4

REPORT INFORMATION
  Report Type: 
  Country: None (occurrence: None)
  Receive Date: 20101203
  Receipt Date: 20101119
  Transmission Date: 20110411
  Serious: Yes (Other)
  Sender: FDA-Public Use
  Company Number: US-ELI_LILLY_AND_COMPANY-US201009005440

PATIENT
  Sex: Female

DRUGS (24)
  1. CYMBALTA [Suspect]
     Indication: NEURALGIA
     Dosage: 20 MG, 3/D
  2. CYMBALTA [Suspect]
     Dosage: 20 MG, 2/D
  3. LYRICA [Concomitant]
     Dosage: UNK, 3/D
  4. PREDNISONE [Concomitant]
     Dosage: UNK, UNKNOWN
  5. PREDNISONE [Concomitant]
     Dosage: 40 MG, DAILY (1/D)
  6. LASIX [Concomitant]
     Indication: OEDEMA
     Dosage: 20 MG, AS NEEDED
  7. METHADONE HCL [Concomitant]
     Dosage: 20 MG, EACH MORNING
  8. METHADONE HCL [Concomitant]
     Dosage: 20 MG, EACH EVENING
  9. STOOL SOFTENER [Concomitant]
     Dosage: UNK, DAILY (1/D)
  10. DURAGESIC-100 [Concomitant]
  11. ANTIBIOTICS [Concomitant]
  12. OXYGEN [Concomitant]
  13. CELEXA [Concomitant]
     Dosage: 5 MG, DAILY (1/D)
  14. BROVANA [Concomitant]
     Dosage: UNK, 2/D
  15. ALBUTEROL [Concomitant]
  16. PROAIR HFA [Concomitant]
     Dosage: UNK, AS NEEDED
  17. AMITRIPTYLINE [Concomitant]
     Indication: INSOMNIA
     Dosage: 50 MG, AS NEEDED
     Route: 048
  18. POTASSIUM CHLORIDE [Concomitant]
     Dosage: 10 MEQ, 2/D
  19. XANAX [Concomitant]
     Dosage: 0.25 MG, 4/D
  20. ALENDRONATE [Concomitant]
     Dosage: 35 MG, WEEKLY (1/W)
     Route: 048
  21. MUCINEX [Concomitant]
     Dosage: 1200 MG, 2/D
  22. MULTI-VITAMIN [Concomitant]
  23. VITAMIN D [Concomitant]
     Dosage: 1000 IU, DAILY (1/D)
  24. CALCIUM 500+D3 [Concomitant]
     Dosage: 500 MG, DAILY (1/D)
     Route: 048

REACTIONS (7)
  - ASTHENIA [None]
  - DRUG INTERACTION [None]
  - DYSPNOEA [None]
  - MENTAL STATUS CHANGES [None]
  - OFF LABEL USE [None]
  - OXYGEN SATURATION DECREASED [None]
  - TREMOR [None]
